FAERS Safety Report 21087026 (Version 2)
Quarter: 2022Q3

REPORT INFORMATION
  Report Type: Report from Study
  Country: JP (occurrence: JP)
  Receive Date: 20220715
  Receipt Date: 20220915
  Transmission Date: 20221027
  Serious: Yes (Other)
  Sender: FDA-Public Use
  Company Number: JP-JNJFOC-20220726305

PATIENT
  Age: 67 Year
  Sex: Male
  Weight: 78.2 kg

DRUGS (14)
  1. TREMFYA [Suspect]
     Active Substance: GUSELKUMAB
     Indication: Psoriatic arthropathy
     Route: 058
     Dates: start: 20181015, end: 20181015
  2. TREMFYA [Suspect]
     Active Substance: GUSELKUMAB
     Indication: Psoriasis
     Route: 058
     Dates: start: 20181112, end: 20181112
  3. TREMFYA [Suspect]
     Active Substance: GUSELKUMAB
     Indication: Nail psoriasis
     Route: 058
     Dates: start: 20190107, end: 20190107
  4. TREMFYA [Suspect]
     Active Substance: GUSELKUMAB
     Route: 058
     Dates: start: 20190304, end: 20190304
  5. TREMFYA [Suspect]
     Active Substance: GUSELKUMAB
     Route: 058
     Dates: start: 20190513, end: 20190513
  6. TREMFYA [Suspect]
     Active Substance: GUSELKUMAB
     Route: 058
     Dates: start: 20190708, end: 20190708
  7. TREMFYA [Suspect]
     Active Substance: GUSELKUMAB
     Route: 058
     Dates: start: 20190909, end: 20190909
  8. TREMFYA [Suspect]
     Active Substance: GUSELKUMAB
     Route: 058
     Dates: start: 20191111
  9. BETAMETHASONE DIPROPIONATE [Concomitant]
     Active Substance: BETAMETHASONE DIPROPIONATE
     Indication: Psoriatic arthropathy
     Dosage: Q.S.
     Route: 061
  10. OXAROL [Concomitant]
     Active Substance: MAXACALCITOL
     Indication: Psoriatic arthropathy
     Dosage: Q.S.
     Route: 061
  11. ETODOLAC [Concomitant]
     Active Substance: ETODOLAC
     Indication: Psoriatic arthropathy
     Route: 048
     Dates: end: 20181210
  12. ETODOLAC [Concomitant]
     Active Substance: ETODOLAC
     Indication: Nail psoriasis
  13. ETODOLAC [Concomitant]
     Active Substance: ETODOLAC
     Indication: Psoriasis
  14. REBAMIPIDE [Concomitant]
     Active Substance: REBAMIPIDE
     Indication: Prophylaxis
     Route: 048
     Dates: end: 20181210

REACTIONS (1)
  - Cerebral infarction [Unknown]

NARRATIVE: CASE EVENT DATE: 20210222
